FAERS Safety Report 13625234 (Version 1)
Quarter: 2017Q2

REPORT INFORMATION
  Report Type: Spontaneous
  Country: US (occurrence: US)
  Receive Date: 20170608
  Receipt Date: 20170608
  Transmission Date: 20170830
  Serious: No
  Sender: FDA-Public Use
  Company Number: US-PFIZER INC-2017246265

PATIENT
  Age: 32 Year
  Sex: Male

DRUGS (4)
  1. IBUPROFEN. [Suspect]
     Active Substance: IBUPROFEN
     Indication: BACK PAIN
     Dosage: 200MG FOUR TABLETS EVERY NIGHT
     Route: 048
     Dates: end: 201705
  2. OXYCODONE [Suspect]
     Active Substance: OXYCODONE
     Dosage: 30 MG
     Dates: end: 201705
  3. BENADRYL [Concomitant]
     Active Substance: DIPHENHYDRAMINE HYDROCHLORIDE
     Indication: HYPERSENSITIVITY
     Dosage: 25MG TWO TABLETS EVERY NIGHT FOR THE PAST YEAR
     Route: 048
  4. BENADRYL [Concomitant]
     Active Substance: DIPHENHYDRAMINE HYDROCHLORIDE
     Indication: SLEEP DISORDER

REACTIONS (12)
  - Weight decreased [Recovering/Resolving]
  - Vomiting [Recovering/Resolving]
  - Product commingling [Unknown]
  - Intentional product misuse [Unknown]
  - Somnolence [Recovering/Resolving]
  - Diarrhoea [Recovering/Resolving]
  - Poor quality drug administered [Unknown]
  - Loss of personal independence in daily activities [Unknown]
  - Decreased appetite [Recovering/Resolving]
  - Drug screen positive [Unknown]
  - Irritability [Recovering/Resolving]
  - Nausea [Recovering/Resolving]

NARRATIVE: CASE EVENT DATE: 201705
